FAERS Safety Report 22006482 (Version 1)
Quarter: 2023Q1

REPORT INFORMATION
  Report Type: Other
  Country: None (occurrence: TH)
  Receive Date: 20230217
  Receipt Date: 20230217
  Transmission Date: 20230417
  Serious: Yes (Hospitalization)
  Sender: FDA-Public Use
  Company Number: TH-Spectra Medical Devices, LLC-2138026

PATIENT
  Age: 51 Year
  Sex: Female

DRUGS (2)
  1. SODIUM CHLORIDE [Suspect]
     Active Substance: SODIUM CHLORIDE
     Indication: Diabetic ketoacidosis
     Route: 042
  2. INSULIN NOS [Concomitant]
     Active Substance: INSULIN NOS
     Route: 065

REACTIONS (7)
  - Chest discomfort [Recovered/Resolved]
  - Swelling of eyelid [Recovered/Resolved]
  - Oedema [Recovered/Resolved]
  - Rales [Recovered/Resolved]
  - Hypervolaemia [Recovered/Resolved]
  - Hilar lymphadenopathy [Recovered/Resolved]
  - Product use in unapproved indication [Unknown]
